FAERS Safety Report 17983789 (Version 1)
Quarter: 2020Q3

REPORT INFORMATION
  Report Type: Spontaneous
  Country: FR (occurrence: FR)
  Receive Date: 20200706
  Receipt Date: 20200706
  Transmission Date: 20201103
  Serious: Yes (Other)
  Sender: FDA-Public Use
  Company Number: FR-TEVA-2020-FR-1795617

PATIENT
  Age: 3 Year
  Sex: Male
  Weight: 16 kg

DRUGS (2)
  1. METHOTREXATE MYLAN [Concomitant]
     Active Substance: METHOTREXATE SODIUM
     Route: 037
  2. VINCRISTINE TEVA 0,1 POUR CENT (1 MG/1 ML), SOLUTION INJECTABLE (I.V.) [Suspect]
     Active Substance: VINCRISTINE
     Indication: LEUKAEMIA
     Dosage: 1 MG
     Route: 041
     Dates: start: 20190908, end: 20190929

REACTIONS (1)
  - Neuropathy peripheral [Recovered/Resolved]

NARRATIVE: CASE EVENT DATE: 20181007
